FAERS Safety Report 8131977-9 (Version None)
Quarter: 2012Q1

REPORT INFORMATION
  Report Type: 
  Country: None (occurrence: None)
  Receive Date: 20120213
  Receipt Date: 20120206
  Transmission Date: 20120608
  Serious: Yes (Hospitalization, Disabling, Other)
  Sender: FDA-Public Use
  Company Number: CA-B.I. PHARMACEUTICALS,INC./RIDGEFIELD-2012-CN-00179CN

PATIENT
  Age: 86 Year
  Sex: Female
  Weight: 38.56 kg

DRUGS (7)
  1. METHOCARBAMOL [Concomitant]
     Route: 065
  2. RAMIPRIL [Suspect]
     Route: 065
  3. ASPIRIN [Concomitant]
     Route: 065
  4. SINEMET [Concomitant]
     Route: 065
  5. AGGRENOX [Suspect]
     Route: 065
  6. ARICEPT [Concomitant]
     Route: 048
  7. TYLENOL W/ CODEINE NO. 3 [Concomitant]
     Route: 065

REACTIONS (7)
  - GASTROOESOPHAGEAL REFLUX DISEASE [None]
  - HYPOTENSION [None]
  - LOSS OF CONSCIOUSNESS [None]
  - ALTERED STATE OF CONSCIOUSNESS [None]
  - CONVULSION [None]
  - DECREASED APPETITE [None]
  - DYSSTASIA [None]
